FAERS Safety Report 7007770-7 (Version None)
Quarter: 2010Q3

REPORT INFORMATION
  Report Type: 
  Country: None (occurrence: None)
  Receive Date: 20100922
  Receipt Date: 20100910
  Transmission Date: 20110219
  Serious: Yes (Hospitalization)
  Sender: FDA-Public Use
  Company Number: US-SANOFI-AVENTIS-2010SA055256

PATIENT
  Sex: Male

DRUGS (2)
  1. NASACORT AQ [Suspect]
     Route: 045
  2. NASONEX [Suspect]
     Route: 065

REACTIONS (4)
  - CHEST DISCOMFORT [None]
  - ENDOCARDITIS [None]
  - EPISTAXIS [None]
  - STAPHYLOCOCCAL INFECTION [None]
